FAERS Safety Report 16207791 (Version 2)
Quarter: 2019Q2

REPORT INFORMATION
  Report Type: Spontaneous
  Country: AR (occurrence: AR)
  Receive Date: 20190417
  Receipt Date: 20190618
  Transmission Date: 20190711
  Serious: Yes (Other)
  Sender: FDA-Public Use
  Company Number: AR-GLAXOSMITHKLINE-AR2019GSK044003

PATIENT
  Age: 58 Year
  Sex: Female

DRUGS (1)
  1. NUCALA [Suspect]
     Active Substance: MEPOLIZUMAB
     Indication: ASTHMA
     Dosage: UNK
     Dates: start: 20190208

REACTIONS (4)
  - Asthenia [Unknown]
  - Pneumonia [Unknown]
  - Dyspnoea [Unknown]
  - Mass [Unknown]

NARRATIVE: CASE EVENT DATE: 201903
